FAERS Safety Report 11754768 (Version 2)
Quarter: 2015Q4

REPORT INFORMATION
  Report Type: Spontaneous
  Country: FR (occurrence: FR)
  Receive Date: 20151119
  Receipt Date: 20151214
  Transmission Date: 20160304
  Serious: Yes (Other)
  Sender: FDA-Public Use
  Company Number: FR-BAYER-2015-462811

PATIENT
  Age: 46 Year
  Sex: Male

DRUGS (3)
  1. CIPROFLOXACIN. [Suspect]
     Active Substance: CIPROFLOXACIN
     Indication: PNEUMONIA
  2. OXAZEPAM. [Concomitant]
     Active Substance: OXAZEPAM
  3. ACAMPROSATE [Concomitant]
     Active Substance: ACAMPROSATE

REACTIONS (1)
  - Pathogen resistance [None]
